FAERS Safety Report 4903754-0 (Version None)
Quarter: 2006Q1

REPORT INFORMATION
  Report Type: 
  Country: None (occurrence: None)
  Receive Date: 20060203
  Receipt Date: 20060125
  Transmission Date: 20060701
  Serious: Yes (Other)
  Sender: FDA-Public Use
  Company Number: 200610392BCC

PATIENT
  Age: 58 Year
  Sex: Male
  Weight: 63.5036 kg

DRUGS (2)
  1. ALEVE (CAPLET) [Suspect]
     Dosage: SEE IMAGE, ORAL
     Route: 048
     Dates: start: 20060122
  2. ALEVE (CAPLET) [Suspect]
     Dosage: SEE IMAGE, ORAL
     Route: 048
     Dates: start: 20060123

REACTIONS (1)
  - BLOOD PRESSURE INCREASED [None]
